FAERS Safety Report 6382323-2 (Version None)
Quarter: 2009Q3

REPORT INFORMATION
  Report Type: 
  Country: None (occurrence: None)
  Receive Date: 20090928
  Receipt Date: 20090928
  Transmission Date: 20100115
  Serious: No
  Sender: FDA-Public Use
  Company Number: None

PATIENT
  Sex: Female
  Weight: 99.7913 kg

DRUGS (10)
  1. TRAMADOL HCL [Suspect]
     Indication: OSTEOARTHRITIS
     Dosage: 50MG 2-3 X DAILY ORAL
     Route: 048
     Dates: start: 20090828
  2. DICLOFENAC SODIUM [Concomitant]
  3. PREVACID [Concomitant]
  4. FOLIC ACID [Concomitant]
  5. CLONAZEPAM [Concomitant]
  6. LORAZEPAM [Concomitant]
  7. BUPROPION HCL [Concomitant]
  8. LEVOTHYROXINE SODIUM [Concomitant]
  9. JUNEL FE [Concomitant]
  10. PROPO-N/APAP [Concomitant]

REACTIONS (1)
  - HEADACHE [None]
